FAERS Safety Report 12947238 (Version 1)
Quarter: 2016Q4

REPORT INFORMATION
  Report Type: Spontaneous
  Country: GB (occurrence: GB)
  Receive Date: 20161116
  Receipt Date: 20161116
  Transmission Date: 20170207
  Serious: Yes (Other)
  Sender: FDA-Public Use
  Company Number: GB-WARNER CHILCOTT, LLC-1059588

PATIENT
  Age: 56 Year
  Sex: Female
  Weight: 75.18 kg

DRUGS (5)
  1. RISEDRONATE [Suspect]
     Active Substance: RISEDRONATE SODIUM
     Route: 048
     Dates: start: 20161026
  2. FOSTAIR [Concomitant]
     Active Substance: BECLOMETHASONE\FORMOTEROL
     Dates: start: 20160316
  3. AMOXICILLIN. [Concomitant]
     Active Substance: AMOXICILLIN
     Dates: start: 20161026
  4. CALCIUM CARBONATE. [Concomitant]
     Active Substance: CALCIUM CARBONATE
     Dates: start: 20160129
  5. VENTOLIN [Concomitant]
     Active Substance: ALBUTEROL SULFATE
     Dates: start: 20160316

REACTIONS (2)
  - Pruritus [Recovered/Resolved]
  - Swelling face [Recovered/Resolved]

NARRATIVE: CASE EVENT DATE: 20161026
